FAERS Safety Report 16926702 (Version 1)
Quarter: 2019Q4

REPORT INFORMATION
  Report Type: Spontaneous
  Country: US (occurrence: US)
  Receive Date: 20191016
  Receipt Date: 20191016
  Transmission Date: 20200122
  Serious: Yes (Other)
  Sender: FDA-Public Use
  Company Number: US-SA-2019SA283754

PATIENT
  Age: 59 Year
  Sex: Female

DRUGS (19)
  1. FLUCONAZOLE. [Concomitant]
     Active Substance: FLUCONAZOLE
  2. FLUTICASONE;SALMETEROL [Concomitant]
     Active Substance: FLUTICASONE PROPIONATE\SALMETEROL XINAFOATE
  3. ZYRTEC-D [Concomitant]
     Active Substance: CETIRIZINE HYDROCHLORIDE\PSEUDOEPHEDRINE HYDROCHLORIDE
  4. PIOGLITAZONE HCL [Concomitant]
     Active Substance: PIOGLITAZONE
  5. DUPIXENT [Suspect]
     Active Substance: DUPILUMAB
     Indication: ASTHMA
     Dosage: 300 MG, QOW
     Route: 058
     Dates: start: 20190701
  6. VITAMINS NOS [Concomitant]
     Active Substance: VITAMINS
  7. METFORMIN HYDROCHLORIDE. [Concomitant]
     Active Substance: METFORMIN HYDROCHLORIDE
  8. TRIAMCINOLONE ACETONIDE. [Concomitant]
     Active Substance: TRIAMCINOLONE ACETONIDE
  9. LISINOPRIL. [Concomitant]
     Active Substance: LISINOPRIL
  10. FLUBLOK QUADRIVALENT [Concomitant]
  11. IPRATROPIUM/ALBUTEROL [Concomitant]
     Active Substance: ALBUTEROL\IPRATROPIUM
  12. ATORVASTATIN CALCIUM. [Concomitant]
     Active Substance: ATORVASTATIN CALCIUM
  13. TIZANIDINE. [Concomitant]
     Active Substance: TIZANIDINE
  14. ASPIRIN [ACETYLSALICYLIC ACID] [Concomitant]
     Active Substance: ASPIRIN
  15. FLONASE ALLERGY RELIEF [Concomitant]
     Active Substance: FLUTICASONE PROPIONATE
  16. JANUVIA [Concomitant]
     Active Substance: SITAGLIPTIN PHOSPHATE
  17. CLOTRIMAZOLE. [Concomitant]
     Active Substance: CLOTRIMAZOLE
  18. PRILOSEC [Concomitant]
     Active Substance: OMEPRAZOLE MAGNESIUM
  19. GLIPIZIDE. [Concomitant]
     Active Substance: GLIPIZIDE

REACTIONS (3)
  - Cancer surgery [Unknown]
  - Malaise [Unknown]
  - Nasopharyngitis [Unknown]

NARRATIVE: CASE EVENT DATE: 2019
